FAERS Safety Report 8671636 (Version 6)
Quarter: 2012Q4

REPORT INFORMATION
  Report Type: Report from Study
  Country: AU (occurrence: AU)
  Receive Date: 20120718
  Receipt Date: 20121107
  Transmission Date: 20130627
  Serious: Yes (Hospitalization)
  Sender: FDA-Public Use
  Company Number: AU-JNJFOC-20120705043

PATIENT
  Sex: Female
  Weight: 115 kg

DRUGS (5)
  1. STELARA [Suspect]
     Indication: PSORIASIS
     Route: 058
     Dates: start: 20120428
  2. STELARA [Suspect]
     Indication: PSORIASIS
     Route: 058
     Dates: start: 20120331
  3. STELARA [Suspect]
     Indication: PSORIASIS
     Route: 058
     Dates: start: 20120920
  4. METHOTREXATE [Suspect]
     Indication: PRODUCT USED FOR UNKNOWN INDICATION
  5. MIXTARD [Concomitant]

REACTIONS (8)
  - Hepatic function abnormal [Recovered/Resolved]
  - Peritonitis bacterial [Recovering/Resolving]
  - Hyponatraemia [Recovering/Resolving]
  - Metabolic disorder [Unknown]
  - Oedema peripheral [Unknown]
  - Vitamin D deficiency [Unknown]
  - Hepatic encephalopathy [Recovered/Resolved]
  - Fatigue [Unknown]
